FAERS Safety Report 7759322-9 (Version None)
Quarter: 2011Q3

REPORT INFORMATION
  Report Type: 
  Country: None (occurrence: None)
  Receive Date: 20110919
  Receipt Date: 20101105
  Transmission Date: 20111222
  Serious: No
  Sender: FDA-Public Use
  Company Number: US-B.I. PHARMACEUTICALS,INC./RIDGEFIELD-2010-BP-12462BP

PATIENT
  Age: 61 Year
  Sex: Male

DRUGS (1)
  1. COMBIVENT [Suspect]
     Indication: WHEEZING
     Route: 055
     Dates: start: 20101028

REACTIONS (1)
  - DRUG INEFFECTIVE [None]
